FAERS Safety Report 25413006 (Version 1)
Quarter: 2025Q2

REPORT INFORMATION
  Report Type: Spontaneous
  Country: US (occurrence: US)
  Receive Date: 20250609
  Receipt Date: 20250609
  Transmission Date: 20250717
  Serious: Yes (Other)
  Sender: AMGEN
  Company Number: US-AMGEN-USASP2025109899

PATIENT
  Sex: Female

DRUGS (1)
  1. TEPEZZA [Suspect]
     Active Substance: TEPROTUMUMAB-TRBW
     Indication: Product used for unknown indication
     Route: 065
     Dates: start: 20230301

REACTIONS (7)
  - Retinal vascular occlusion [Unknown]
  - Graves^ disease [Unknown]
  - Hypoacusis [Unknown]
  - Oedema peripheral [Unknown]
  - Peripheral swelling [Unknown]
  - Skin discomfort [Unknown]
  - Papule [Unknown]
